FAERS Safety Report 21530734 (Version 1)
Quarter: 2022Q4

REPORT INFORMATION
  Report Type: Spontaneous
  Country: US (occurrence: None)
  Receive Date: 20221029
  Receipt Date: 20221029
  Transmission Date: 20230112
  Serious: Yes (Life-Threatening, Disabling)
  Sender: FDA-Public Use
  Company Number: None

PATIENT
  Age: 34 Year
  Sex: Male
  Weight: 75 kg

DRUGS (1)
  1. INVEGA SUSTENNA [Suspect]
     Active Substance: PALIPERIDONE PALMITATE
     Dates: start: 20150401, end: 20221029

REACTIONS (18)
  - Dyskinesia [None]
  - Pain [None]
  - Oral disorder [None]
  - Paralysis [None]
  - Dyspnoea [None]
  - Protrusion tongue [None]
  - Oligodipsia [None]
  - Aphasia [None]
  - Lip disorder [None]
  - Dyskinesia [None]
  - Posture abnormal [None]
  - Gait disturbance [None]
  - Dry mouth [None]
  - Logorrhoea [None]
  - Injection site pain [None]
  - Constipation [None]
  - Anxiety [None]
  - Musculoskeletal discomfort [None]

NARRATIVE: CASE EVENT DATE: 20221013
